APPROVED DRUG PRODUCT: THEOPHYLLINE
Active Ingredient: THEOPHYLLINE
Strength: 400MG
Dosage Form/Route: TABLET, EXTENDED RELEASE;ORAL
Application: A040560 | Product #003 | TE Code: AB
Applicant: MPP PHARMA LLC
Approved: Apr 21, 2006 | RLD: No | RS: No | Type: RX